FAERS Safety Report 6882748-2 (Version None)
Quarter: 2010Q3

REPORT INFORMATION
  Report Type: 
  Country: None (occurrence: None)
  Receive Date: 20100729
  Receipt Date: 20100719
  Transmission Date: 20110219
  Serious: Yes (Other)
  Sender: FDA-Public Use
  Company Number: DE-ROCHE-716148

PATIENT

DRUGS (2)
  1. ISOTRETINOIN [Suspect]
     Indication: ROSACEA
     Route: 048
  2. PLACEBO [Suspect]
     Indication: ROSACEA
     Route: 048

REACTIONS (1)
  - CEREBRAL ISCHAEMIA [None]
